FAERS Safety Report 21339539 (Version 2)
Quarter: 2022Q3

REPORT INFORMATION
  Report Type: Spontaneous
  Country: US (occurrence: US)
  Receive Date: 20220915
  Receipt Date: 20220927
  Transmission Date: 20221027
  Serious: No
  Sender: FDA-Public Use
  Company Number: US-SA-SAC20220913002057

PATIENT
  Age: 27 Year
  Sex: Male

DRUGS (1)
  1. CABLIVI [Suspect]
     Active Substance: CAPLACIZUMAB-YHDP
     Indication: Thrombotic microangiopathy
     Dosage: 11 MG, QD
     Route: 058
     Dates: start: 20220901

REACTIONS (3)
  - ADAMTS13 activity abnormal [Unknown]
  - Epistaxis [Unknown]
  - Product use in unapproved indication [Unknown]

NARRATIVE: CASE EVENT DATE: 20220901
